FAERS Safety Report 21984731 (Version 2)
Quarter: 2023Q1

REPORT INFORMATION
  Report Type: Spontaneous
  Country: US (occurrence: US)
  Receive Date: 20230213
  Receipt Date: 20230214
  Transmission Date: 20230417
  Serious: Yes (Life-Threatening, Hospitalization, Other)
  Sender: FDA-Public Use
  Company Number: US-PFIZER INC-PV202300024348

PATIENT
  Age: 22 Day
  Sex: Male

DRUGS (3)
  1. GENTAMICIN SULFATE [Suspect]
     Active Substance: GENTAMICIN SULFATE
     Indication: Botulism
     Dosage: UNK
  2. GENTAMICIN SULFATE [Suspect]
     Active Substance: GENTAMICIN SULFATE
     Indication: Sepsis
  3. AMPICILLIN [Concomitant]
     Active Substance: AMPICILLIN
     Indication: Sepsis
     Dosage: UNK

REACTIONS (1)
  - Paralysis [Recovered/Resolved]
